FAERS Safety Report 4466099-1 (Version None)
Quarter: 2004Q3

REPORT INFORMATION
  Report Type: 
  Country: None (occurrence: None)
  Receive Date: 20040929
  Receipt Date: 20040929
  Transmission Date: 20050211
  Serious: Yes (Hospitalization)
  Sender: FDA-Public Use
  Company Number: None

PATIENT
  Age: 62 Year
  Sex: Male
  Weight: 67.2 kg

DRUGS (8)
  1. INTEGRILIN [Suspect]
     Indication: ANTIPLATELET THERAPY
     Dosage: 2( 6.2 ML BOLUSES) 11.0 ML/HR IV
     Route: 042
     Dates: start: 20040921
  2. NITROGLYCERIN [Concomitant]
  3. MORPHINE [Concomitant]
  4. MIDAZOLAM HCL [Concomitant]
  5. CEFAZOLIN [Concomitant]
  6. CLOPIDOGREL [Concomitant]
  7. ASPIRIN [Concomitant]
  8. PEPCID [Concomitant]

REACTIONS (4)
  - CORONARY ARTERY THROMBOSIS [None]
  - LABORATORY TEST ABNORMAL [None]
  - MEDICAL DEVICE COMPLICATION [None]
  - PROCEDURAL COMPLICATION [None]
